FAERS Safety Report 18008629 (Version 6)
Quarter: 2021Q2

REPORT INFORMATION
  Report Type: Spontaneous
  Country: BR (occurrence: BR)
  Receive Date: 20200710
  Receipt Date: 20210512
  Transmission Date: 20210717
  Serious: Yes (Hospitalization, Other)
  Sender: FDA-Public Use
  Company Number: BR-GLAXOSMITHKLINE-BR2019AMR213926

PATIENT
  Sex: Male
  Weight: 108 kg

DRUGS (6)
  1. BENLYSTA [Suspect]
     Active Substance: BELIMUMAB
     Dosage: UNK
     Dates: start: 20200213
  2. BENLYSTA [Suspect]
     Active Substance: BELIMUMAB
     Dosage: UNK
     Dates: start: 20200807
  3. BENLYSTA [Suspect]
     Active Substance: BELIMUMAB
     Indication: SYSTEMIC LUPUS ERYTHEMATOSUS
     Dosage: UNK(760 MG)
     Dates: start: 20150410
  4. PREDNISONE. [Concomitant]
     Active Substance: PREDNISONE
     Indication: PRODUCT USED FOR UNKNOWN INDICATION
     Dosage: UNK
  5. BENLYSTA [Suspect]
     Active Substance: BELIMUMAB
     Dosage: UNK
     Dates: start: 20200316
  6. HYDROXYCHLOROQUINE [Concomitant]
     Active Substance: HYDROXYCHLOROQUINE
     Indication: PRODUCT USED FOR UNKNOWN INDICATION
     Dosage: UNK

REACTIONS (5)
  - Dependence [Recovered/Resolved]
  - Inappropriate schedule of product administration [Unknown]
  - Weight increased [Unknown]
  - Underdose [Unknown]
  - Product dose omission issue [Unknown]
